FAERS Safety Report 13214321 (Version 2)
Quarter: 2017Q2

REPORT INFORMATION
  Report Type: Report from Study
  Country: US (occurrence: US)
  Receive Date: 20170210
  Receipt Date: 20170510
  Transmission Date: 20170830
  Serious: Yes (Life-Threatening, Hospitalization, Disabling)
  Sender: FDA-Public Use
  Company Number: US-EXELIXIS-XL18417008200

PATIENT
  Age: 38 Year
  Sex: Male
  Weight: 86.2 kg

DRUGS (1)
  1. XL184 [Suspect]
     Active Substance: CABOZANTINIB
     Indication: KAPOSI^S SARCOMA
     Dosage: 60 MG, QD
     Route: 048
     Dates: start: 20161109, end: 20161129

REACTIONS (1)
  - Necrotising fasciitis [Not Recovered/Not Resolved]

NARRATIVE: CASE EVENT DATE: 20161213
